FAERS Safety Report 6580275-3 (Version None)
Quarter: 2010Q1

REPORT INFORMATION
  Report Type: 
  Country: None (occurrence: None)
  Receive Date: 20100212
  Receipt Date: 20100203
  Transmission Date: 20100710
  Serious: Yes (Other)
  Sender: FDA-Public Use
  Company Number: DK-NOVOPROD-303496

PATIENT
  Age: 18 Year
  Sex: Male
  Weight: 27.4 kg

DRUGS (3)
  1. NORDITROPIN NORDIFLEX [Suspect]
     Indication: DRUG USE FOR UNKNOWN INDICATION
     Dosage: 0.55 MG, QD FOR 14 DAYS
     Dates: start: 20060913, end: 20061102
  2. NORDITROPIN NORDIFLEX [Suspect]
     Dosage: 1.1 MG, QD
  3. NORDITROPIN NORDIFLEX [Suspect]
     Dosage: 0.7 MG, QD

REACTIONS (1)
  - PAPILLOEDEMA [None]
